FAERS Safety Report 18014089 (Version 1)
Quarter: 2020Q3

REPORT INFORMATION
  Report Type: Spontaneous
  Country: US (occurrence: US)
  Receive Date: 20200711
  Receipt Date: 20200711
  Transmission Date: 20201103
  Serious: Yes (Hospitalization)
  Sender: FDA-Public Use
  Company Number: None

PATIENT
  Sex: Female
  Weight: 67.1 kg

DRUGS (7)
  1. PREDNISOLONE. [Suspect]
     Active Substance: PREDNISOLONE
     Dates: end: 20200704
  2. DAUNORUBICIN [Suspect]
     Active Substance: DAUNORUBICIN
     Dates: start: 20200701
  3. ONCASPAR [Suspect]
     Active Substance: PEGASPARGASE
     Dates: end: 20200701
  4. CYTARABINE. [Suspect]
     Active Substance: CYTARABINE
     Indication: PRODUCT DOSE OMISSION ISSUE
     Dates: end: 20200629
  5. CYTARABINE. [Suspect]
     Active Substance: CYTARABINE
     Indication: PRODUCT PRESCRIBING ERROR
     Dates: end: 20200629
  6. METHOTEXATE [Suspect]
     Active Substance: METHOTREXATE
     Dates: end: 20200709
  7. VINCRISTINE [Suspect]
     Active Substance: VINCRISTINE
     Dates: end: 20200701

REACTIONS (11)
  - Tumour lysis syndrome [None]
  - Hyperphosphataemia [None]
  - Haemodialysis [None]
  - Hyperkalaemia [None]
  - Respiratory distress [None]
  - Acute kidney injury [None]
  - Hypoxia [None]
  - Leukaemia [None]
  - Hypocalcaemia [None]
  - Fluid overload [None]
  - Urine output decreased [None]

NARRATIVE: CASE EVENT DATE: 20200704
